FAERS Safety Report 5012291-7 (Version None)
Quarter: 2006Q2

REPORT INFORMATION
  Report Type: 
  Country: None (occurrence: None)
  Receive Date: 20060524
  Receipt Date: 20060512
  Transmission Date: 20061013
  Serious: Yes (Hospitalization)
  Sender: FDA-Public Use
  Company Number: 2006061616

PATIENT
  Age: 20 Year
  Sex: Female

DRUGS (1)
  1. DEPO-PROVERA [Suspect]
     Indication: MENSTRUAL DISCOMFORT
     Dosage: 150 MG (150 MG, SINGLE INJECTION) INTRAMUSCULAR
     Route: 030
     Dates: start: 20060217, end: 20060217

REACTIONS (9)
  - ANXIETY [None]
  - CONVERSION DISORDER [None]
  - CONVULSION [None]
  - HALLUCINATION [None]
  - HEADACHE [None]
  - MOOD ALTERED [None]
  - NERVOUSNESS [None]
  - STRESS [None]
  - SYNCOPE [None]
